FAERS Safety Report 25113450 (Version 2)
Quarter: 2025Q3

REPORT INFORMATION
  Report Type: Spontaneous
  Country: EU (occurrence: EU)
  Receive Date: 20250324
  Receipt Date: 20250825
  Transmission Date: 20251021
  Serious: Yes (Death, Hospitalization)
  Sender: MERCK SHARP & DOHME LLC
  Company Number: EU-009507513-2261171

PATIENT
  Age: 41 Year
  Sex: Female
  Weight: 64 kg

DRUGS (10)
  1. PEMBROLIZUMAB [Suspect]
     Active Substance: PEMBROLIZUMAB
     Indication: Nasopharyngeal cancer
     Dates: start: 20240226, end: 20240226
  2. PEMBROLIZUMAB [Suspect]
     Active Substance: PEMBROLIZUMAB
     Indication: Nasopharyngeal cancer
     Dates: start: 202401, end: 202403
  3. PEMBROLIZUMAB [Suspect]
     Active Substance: PEMBROLIZUMAB
     Indication: Nasopharyngeal cancer
     Dates: start: 20240321, end: 20240321
  4. CISPLATIN [Suspect]
     Active Substance: CISPLATIN
     Indication: Nasopharyngeal cancer
  5. CISPLATIN [Suspect]
     Active Substance: CISPLATIN
     Indication: Nasopharyngeal cancer
     Dates: start: 20240209, end: 20240209
  6. CISPLATIN [Suspect]
     Active Substance: CISPLATIN
     Indication: Nasopharyngeal cancer
     Dates: start: 20240209, end: 20240209
  7. PACLITAXEL [Suspect]
     Active Substance: PACLITAXEL
     Indication: Nasopharyngeal cancer
     Dates: start: 20240126, end: 20240126
  8. PACLITAXEL [Suspect]
     Active Substance: PACLITAXEL
     Indication: Nasopharyngeal cancer
     Dates: start: 20240209, end: 20240209
  9. PACLITAXEL [Suspect]
     Active Substance: PACLITAXEL
     Indication: Nasopharyngeal cancer
     Dates: start: 20240321, end: 20240321
  10. PACLITAXEL [Suspect]
     Active Substance: PACLITAXEL
     Indication: Nasopharyngeal cancer

REACTIONS (7)
  - Malignant neoplasm progression [Fatal]
  - Immune-mediated thyroiditis [Recovering/Resolving]
  - Toxicity to various agents [Recovering/Resolving]
  - Product use issue [Unknown]
  - Immune-mediated lung disease [Recovering/Resolving]
  - Autoimmune thyroiditis [Recovering/Resolving]
  - Inappropriate schedule of product administration [Unknown]

NARRATIVE: CASE EVENT DATE: 20240101
